FAERS Safety Report 23852435 (Version 1)
Quarter: 2024Q2

REPORT INFORMATION
  Report Type: Spontaneous
  Country: US (occurrence: None)
  Receive Date: 20240513
  Receipt Date: 20240513
  Transmission Date: 20240716
  Serious: No
  Sender: FDA-Public Use
  Company Number: None

PATIENT
  Age: 58 Year
  Sex: Male
  Weight: 72 kg

DRUGS (1)
  1. CAPECITABINE [Suspect]
     Active Substance: CAPECITABINE
     Indication: Renal cancer
     Dosage: 1500 MG TWICE A DAY ORAL
     Route: 048
     Dates: start: 20240509

REACTIONS (5)
  - Dyspnoea [None]
  - Chest pain [None]
  - Burning sensation [None]
  - Nausea [None]
  - Dyspnoea exertional [None]

NARRATIVE: CASE EVENT DATE: 20240510
